FAERS Safety Report 6282816-2 (Version None)
Quarter: 2009Q3

REPORT INFORMATION
  Report Type: 
  Country: None (occurrence: None)
  Receive Date: 20090724
  Receipt Date: 20090714
  Transmission Date: 20100115
  Serious: Yes (Disabling, Other)
  Sender: FDA-Public Use
  Company Number: GB-PFIZER INC-2009240618

PATIENT
  Age: 68 Year

DRUGS (3)
  1. DOXAZOSIN MESILATE [Suspect]
     Indication: UROGENITAL DISORDER
     Dosage: 2 MG, UNK
  2. LIPITOR [Suspect]
     Indication: BLOOD CHOLESTEROL INCREASED
     Dosage: 20 MG, UNK
  3. TAMSULOSIN [Suspect]
     Dosage: 400 UG, UNK

REACTIONS (9)
  - ASTHENIA [None]
  - DRUG INEFFECTIVE [None]
  - DYSPNOEA [None]
  - MUSCULOSKELETAL PAIN [None]
  - NECK PAIN [None]
  - PAIN [None]
  - RENAL PAIN [None]
  - UROGENITAL DISORDER [None]
  - WEIGHT DECREASED [None]
